FAERS Safety Report 25013454 (Version 1)
Quarter: 2025Q1

REPORT INFORMATION
  Report Type: Spontaneous
  Country: US (occurrence: US)
  Receive Date: 20250226
  Receipt Date: 20250226
  Transmission Date: 20250408
  Serious: No
  Sender: UCB
  Company Number: US-UCBSA-2024036560

PATIENT
  Sex: Male

DRUGS (21)
  1. LEVETIRACETAM [Suspect]
     Active Substance: LEVETIRACETAM
     Indication: Generalised tonic-clonic seizure
  2. LEVETIRACETAM [Suspect]
     Active Substance: LEVETIRACETAM
     Indication: Myoclonic epilepsy
  3. LEVETIRACETAM [Suspect]
     Active Substance: LEVETIRACETAM
     Indication: Off label use
  4. PHENOBARBITAL [Suspect]
     Active Substance: PHENOBARBITAL
     Indication: Generalised tonic-clonic seizure
  5. PHENOBARBITAL [Suspect]
     Active Substance: PHENOBARBITAL
     Indication: Myoclonic epilepsy
  6. VALPROATE [Suspect]
     Active Substance: VALPROIC ACID
     Indication: Generalised tonic-clonic seizure
  7. VALPROATE [Suspect]
     Active Substance: VALPROIC ACID
     Indication: Myoclonic epilepsy
  8. VIGABATRIN [Concomitant]
     Active Substance: VIGABATRIN
     Indication: Generalised tonic-clonic seizure
  9. VIGABATRIN [Concomitant]
     Active Substance: VIGABATRIN
     Indication: Myoclonic epilepsy
  10. CLOBAZAM [Concomitant]
     Active Substance: CLOBAZAM
     Indication: Generalised tonic-clonic seizure
  11. CLOBAZAM [Concomitant]
     Active Substance: CLOBAZAM
     Indication: Myoclonic epilepsy
  12. PREDNISOLONE [Concomitant]
     Active Substance: PREDNISOLONE
     Indication: Generalised tonic-clonic seizure
  13. PREDNISOLONE [Concomitant]
     Active Substance: PREDNISOLONE
     Indication: Myoclonic epilepsy
  14. TOPIRAMATE [Concomitant]
     Active Substance: TOPIRAMATE
     Indication: Generalised tonic-clonic seizure
  15. TOPIRAMATE [Concomitant]
     Active Substance: TOPIRAMATE
     Indication: Myoclonic epilepsy
  16. CLONAZEPAM [Concomitant]
     Active Substance: CLONAZEPAM
     Indication: Dystonia
  17. LORAZEPAM [Concomitant]
     Active Substance: LORAZEPAM
     Indication: Dystonia
  18. TRIHEXYPHENIDYL [Concomitant]
     Active Substance: TRIHEXYPHENIDYL
     Indication: Dyskinesia
  19. DIAZEPAM [Concomitant]
     Active Substance: DIAZEPAM
     Indication: Dystonia
  20. GABAPENTIN [Concomitant]
     Active Substance: GABAPENTIN
     Indication: Dystonia
  21. CLONIDINE [Concomitant]
     Active Substance: CLONIDINE
     Indication: Dystonia

REACTIONS (2)
  - Off label use [Unknown]
  - Multiple-drug resistance [Unknown]
